FAERS Safety Report 9097217 (Version 1)
Quarter: 2013Q1

REPORT INFORMATION
  Report Type: Spontaneous
  Country: FR (occurrence: FR)
  Receive Date: 20130212
  Receipt Date: 20130212
  Transmission Date: 20140127
  Serious: Yes (Hospitalization)
  Sender: FDA-Public Use
  Company Number: FR-PFIZER INC-2013052049

PATIENT
  Age: 69 Year
  Sex: Male

DRUGS (6)
  1. TAHOR [Suspect]
     Indication: DYSLIPIDAEMIA
     Dosage: 10 MG, 1X/DAY
     Route: 048
  2. VAXIGRIP [Suspect]
     Indication: INFLUENZA IMMUNISATION
     Dosage: 1 DF, SINGLE
     Route: 030
     Dates: start: 201111, end: 201111
  3. GLUCOPHAGE [Suspect]
     Dosage: 850 MG, 3X/DAY
     Route: 048
  4. ZESTRIL [Suspect]
     Dosage: 20 MG, 1X/DAY
     Route: 048
  5. ATENOLOL [Suspect]
     Dosage: 25 MG, 1X/DAY
     Route: 048
  6. DOLIPRANE [Suspect]
     Dosage: 1000 MG, 4X/DAY, IF NEEDED
     Route: 048

REACTIONS (1)
  - Amyotrophic lateral sclerosis [Not Recovered/Not Resolved]
